FAERS Safety Report 14615229 (Version 12)
Quarter: 2020Q2

REPORT INFORMATION
  Report Type: Spontaneous
  Country: US (occurrence: US)
  Receive Date: 20180308
  Receipt Date: 20200505
  Transmission Date: 20200713
  Serious: Yes (Death, Hospitalization, Other)
  Sender: FDA-Public Use
  Company Number: US-ACTELION-A-US2018-168666

PATIENT
  Age: 54 Year
  Sex: Male

DRUGS (14)
  1. OPSUMIT [Suspect]
     Active Substance: MACITENTAN
     Dosage: 10 MG, QD
     Route: 048
     Dates: start: 20180509, end: 20190101
  2. SPIRONOLACTONE. [Concomitant]
     Active Substance: SPIRONOLACTONE
     Dosage: 25 MG, QD
  3. UPTRAVI [Suspect]
     Active Substance: SELEXIPAG
     Indication: PULMONARY ARTERIAL HYPERTENSION
     Dosage: 200 MCG, BID
     Route: 048
  4. FUROSEMIDE. [Concomitant]
     Active Substance: FUROSEMIDE
     Dosage: 20 MG, QD
  5. ALBUTEROL. [Concomitant]
     Active Substance: ALBUTEROL
     Dosage: 1 PUFF, PRN
  6. SPIRIVA [Concomitant]
     Active Substance: TIOTROPIUM BROMIDE MONOHYDRATE
     Dosage: 1 PUFF, BID
  7. THIAMINE. [Concomitant]
     Active Substance: THIAMINE
  8. OPSUMIT [Suspect]
     Active Substance: MACITENTAN
     Indication: PULMONARY ARTERIAL HYPERTENSION
     Dosage: 10 MG, QD
     Route: 048
     Dates: start: 20180216, end: 20180427
  9. ATORVASTATIN [Concomitant]
     Active Substance: ATORVASTATIN
     Dosage: 80 MG, QD
  10. FOLIC ACID. [Concomitant]
     Active Substance: FOLIC ACID
     Dosage: 1 MG, QD
  11. MAGNESIUM [Concomitant]
     Active Substance: MAGNESIUM
  12. CARVEDILOL. [Concomitant]
     Active Substance: CARVEDILOL
     Dosage: 25 MG, BID
  13. PREDNISONE. [Concomitant]
     Active Substance: PREDNISONE
     Dosage: 10 MG, QD
  14. LISINOPRIL. [Concomitant]
     Active Substance: LISINOPRIL
     Dosage: 5 MG, QD

REACTIONS (20)
  - Oedema peripheral [Recovered/Resolved with Sequelae]
  - Diarrhoea [Unknown]
  - Dehydration [Unknown]
  - Hypokalaemia [Recovered/Resolved with Sequelae]
  - Pulmonary hypertension [Recovered/Resolved with Sequelae]
  - Brain natriuretic peptide increased [Unknown]
  - Dizziness [Unknown]
  - Asthenia [Unknown]
  - Death [Fatal]
  - Herpes zoster [Recovered/Resolved with Sequelae]
  - Syncope [Not Recovered/Not Resolved]
  - Headache [Unknown]
  - Dyspnoea [Recovered/Resolved with Sequelae]
  - Loss of control of legs [Not Recovered/Not Resolved]
  - Myalgia [Not Recovered/Not Resolved]
  - Somnolence [Unknown]
  - Hypovitaminosis [Unknown]
  - Cardiac failure congestive [Unknown]
  - Hospitalisation [Unknown]
  - Back pain [Unknown]

NARRATIVE: CASE EVENT DATE: 20180223
